FAERS Safety Report 8190110-8 (Version None)
Quarter: 2012Q1

REPORT INFORMATION
  Report Type: 
  Country: None (occurrence: None)
  Receive Date: 20120307
  Receipt Date: 20120307
  Transmission Date: 20120608
  Serious: Yes (Hospitalization)
  Sender: FDA-Public Use
  Company Number: None

PATIENT
  Age: 54 Year
  Sex: Female
  Weight: 95.254 kg

DRUGS (1)
  1. RECLAST [Suspect]
     Indication: OSTEOPOROSIS
     Dosage: 100CC SOLUTION
     Route: 041
     Dates: start: 20120224, end: 20120224

REACTIONS (4)
  - CHEST PAIN [None]
  - FLANK PAIN [None]
  - MUSCLE STRAIN [None]
  - DYSPNOEA [None]
